FAERS Safety Report 9586548 (Version 2)
Quarter: 2013Q4

REPORT INFORMATION
  Report Type: Report from Study
  Country: US (occurrence: US)
  Receive Date: 20131003
  Receipt Date: 20131003
  Transmission Date: 20140711
  Serious: Yes (Hospitalization)
  Sender: FDA-Public Use
  Company Number: US-ASTELLAS-2010US000517

PATIENT
  Age: 4 Year
  Sex: Female
  Weight: 16 kg

DRUGS (3)
  1. TACROLIMUS OINTMENT [Suspect]
     Indication: DERMATITIS ATOPIC
     Dosage: 0.1 %, BID
     Route: 061
     Dates: start: 20070910, end: 200905
  2. BENADRYL                           /00000402/ [Concomitant]
     Indication: DERMATITIS ATOPIC
     Dosage: UNK UNK, UNKNOWN/D
     Route: 048
  3. TRIAMCINOLONE [Concomitant]
     Indication: DERMATITIS ATOPIC
     Dosage: UNK UNK, UNKNOWN/D
     Route: 061

REACTIONS (5)
  - Off label use [Unknown]
  - Asthma [Unknown]
  - Status asthmaticus [Recovered/Resolved]
  - Pneumonia [Recovered/Resolved]
  - Status asthmaticus [Recovered/Resolved]
